FAERS Safety Report 5064653-X (Version None)
Quarter: 2006Q3

REPORT INFORMATION
  Report Type: 
  Country: None (occurrence: None)
  Receive Date: 20060728
  Receipt Date: 20060515
  Transmission Date: 20061208
  Serious: Yes (Hospitalization)
  Sender: FDA-Public Use
  Company Number: IT-ROCHE-447831

PATIENT
  Age: 58 Year
  Sex: Male

DRUGS (8)
  1. MYCOPHENOLATE MOFETIL [Suspect]
     Route: 048
     Dates: start: 20060411
  2. FK506 [Suspect]
     Route: 048
     Dates: start: 20060411, end: 20060416
  3. FK506 [Suspect]
     Route: 048
     Dates: start: 20060422
  4. LAMIVUDINE [Concomitant]
  5. BACTRIM [Concomitant]
  6. PIP/TAZO [Concomitant]
  7. GENTAMICIN [Concomitant]
  8. FLUCONAZOLE [Concomitant]

REACTIONS (2)
  - COMPLICATIONS OF TRANSPLANT SURGERY [None]
  - NERVOUS SYSTEM DISORDER [None]
